FAERS Safety Report 17321815 (Version 2)
Quarter: 2020Q1

REPORT INFORMATION
  Report Type: Report from Study
  Country: FR (occurrence: FR)
  Receive Date: 20200127
  Receipt Date: 20200204
  Transmission Date: 20200409
  Serious: Yes (Death, Hospitalization, Other)
  Sender: FDA-Public Use
  Company Number: FR-BRISTOL-MYERS SQUIBB COMPANY-BMS-2020-006084

PATIENT
  Age: 63 Year
  Sex: Male
  Weight: 90 kg

DRUGS (4)
  1. NIVOLUMAB [Suspect]
     Active Substance: NIVOLUMAB
     Indication: PRODUCT USED FOR UNKNOWN INDICATION
     Dosage: 480 MILLIGRAM, CYCLE 13 WEEK 1
     Route: 042
     Dates: start: 20190809, end: 20190809
  2. IPILIMUMAB [Suspect]
     Active Substance: IPILIMUMAB
     Indication: PRODUCT USED FOR UNKNOWN INDICATION
     Dosage: 90 MILLIGRAM, CYCLE 2 WEEK 4
     Route: 042
     Dates: start: 20180413, end: 20180413
  3. NIVOLUMAB [Suspect]
     Active Substance: NIVOLUMAB
     Indication: RENAL CANCER METASTATIC
     Dosage: 288 MILLIGRAM, CYCLE 1 WEEK 1
     Route: 042
     Dates: start: 20180209, end: 20180209
  4. IPILIMUMAB [Suspect]
     Active Substance: IPILIMUMAB
     Indication: RENAL CANCER METASTATIC
     Dosage: 95 MILLIGRAM, CYCLE 1 WEEK 1
     Route: 042
     Dates: start: 20180209, end: 20180209

REACTIONS (3)
  - Staphylococcal sepsis [Fatal]
  - Intervertebral discitis [Fatal]
  - Staphylococcal mediastinitis [Fatal]

NARRATIVE: CASE EVENT DATE: 201912
